FAERS Safety Report 16423958 (Version 1)
Quarter: 2019Q2

REPORT INFORMATION
  Report Type: Spontaneous
  Country: ES (occurrence: ES)
  Receive Date: 20190613
  Receipt Date: 20190613
  Transmission Date: 20190711
  Serious: Yes (Other)
  Sender: FDA-Public Use
  Company Number: ES-AUROBINDO-AUR-APL-2019-033317

PATIENT

DRUGS (1)
  1. CELECOXIB. [Suspect]
     Active Substance: CELECOXIB
     Indication: LIGAMENT SPRAIN
     Dosage: 200 MILLIGRAM, ONCE A DAY
     Route: 048
     Dates: start: 20190507

REACTIONS (4)
  - Abdominal pain upper [Unknown]
  - Muscle spasms [Unknown]
  - Nausea [Unknown]
  - Haematochezia [Unknown]

NARRATIVE: CASE EVENT DATE: 20190509
